FAERS Safety Report 8667016 (Version 4)
Quarter: 2013Q1

REPORT INFORMATION
  Report Type: Spontaneous
  Country: US (occurrence: US)
  Receive Date: 20120716
  Receipt Date: 20130205
  Transmission Date: 20140127
  Serious: Yes (Hospitalization, Other)
  Sender: FDA-Public Use
  Company Number: US-GILEAD-2012-0056822

PATIENT
  Age: 31 Year
  Sex: Female

DRUGS (2)
  1. LETAIRIS [Suspect]
     Indication: PULMONARY HYPERTENSION
     Dosage: 10 MG, UNK
     Route: 048
     Dates: start: 20120529
  2. LETAIRIS [Suspect]
     Indication: PULMONARY FIBROSIS

REACTIONS (12)
  - Thrombosis [Unknown]
  - Jugular vein distension [Unknown]
  - Pain in extremity [Unknown]
  - Local swelling [Unknown]
  - Chest pain [Unknown]
  - Haemoptysis [Unknown]
  - Nasal dryness [Unknown]
  - Fatigue [Unknown]
  - Dizziness [Unknown]
  - Headache [Unknown]
  - Dyspnoea [Unknown]
  - Fluid retention [Unknown]
